FAERS Safety Report 6750204-8 (Version None)
Quarter: 2010Q2

REPORT INFORMATION
  Report Type: 
  Country: None (occurrence: None)
  Receive Date: 20100601
  Receipt Date: 20100520
  Transmission Date: 20101027
  Serious: Yes (Life-Threatening, Other)
  Sender: FDA-Public Use
  Company Number: RU-PFIZER INC-2010063509

PATIENT
  Age: 24 Year
  Sex: Male
  Weight: 64 kg

DRUGS (6)
  1. BLINDED *NO SUBJECT DRUG [Suspect]
     Indication: ASPERGILLOSIS
     Dosage: UNK
     Route: 042
     Dates: start: 20100512
  2. BLINDED *PLACEBO [Suspect]
     Indication: ASPERGILLOSIS
     Dosage: UNK
     Route: 042
     Dates: start: 20100512
  3. BLINDED ANIDULAFUNGIN [Suspect]
     Indication: ASPERGILLOSIS
     Dosage: UNK
     Route: 042
     Dates: start: 20100512
  4. VORICONAZOLE [Suspect]
     Indication: ASPERGILLOSIS
     Dosage: 370 MG, 2X/DAY
     Route: 042
     Dates: start: 20100512, end: 20100512
  5. VORICONAZOLE [Suspect]
     Dosage: 250 MG, 2X/DAY
     Route: 042
     Dates: start: 20100513
  6. METHYLPREDNISOLONE [Suspect]
     Indication: GRAFT VERSUS HOST DISEASE
     Dosage: 64 MG, UNK
     Dates: start: 20100301

REACTIONS (1)
  - DUODENAL ULCER HAEMORRHAGE [None]
